FAERS Safety Report 23494608 (Version 1)
Quarter: 2024Q1

REPORT INFORMATION
  Report Type: Spontaneous
  Country: US (occurrence: None)
  Receive Date: 20240206
  Receipt Date: 20240206
  Transmission Date: 20240409
  Serious: Yes (Life-Threatening)
  Sender: FDA-Public Use
  Company Number: None

PATIENT
  Age: 21 Year
  Sex: Female
  Weight: 56.25 kg

DRUGS (6)
  1. TOPIRAMATE [Suspect]
     Active Substance: TOPIRAMATE
     Indication: Migraine prophylaxis
     Dosage: 1 TABLET AT BEDTIME ORAL
     Route: 048
     Dates: start: 20231201, end: 20240128
  2. DEXAMETHASONE [Concomitant]
     Active Substance: DEXAMETHASONE
  3. SPIRONOLACTONE [Suspect]
     Active Substance: SPIRONOLACTONE
  4. ESCITALOPRAM [Concomitant]
     Active Substance: ESCITALOPRAM OXALATE
  5. EVEKEO [Concomitant]
     Active Substance: AMPHETAMINE SULFATE
  6. Women^s multi vitamin [Concomitant]

REACTIONS (7)
  - Cognitive disorder [None]
  - Memory impairment [None]
  - Disturbance in attention [None]
  - Coordination abnormal [None]
  - Hyporeflexia [None]
  - Depression [None]
  - Suicidal ideation [None]

NARRATIVE: CASE EVENT DATE: 20240130
